FAERS Safety Report 8713048 (Version 2)
Quarter: 2012Q4

REPORT INFORMATION
  Report Type: 
  Country: US (occurrence: US)
  Receive Date: 20120808
  Receipt Date: 20121029
  Transmission Date: 20130627
  Serious: Yes (Hospitalization, Disabling, Other)
  Sender: FDA-Public Use
  Company Number: US-PFIZER INC-2012191984

PATIENT
  Age: 30 Year
  Sex: Female

DRUGS (2)
  1. CHANTIX [Suspect]
     Indication: SMOKING CESSATION THERAPY
     Dosage: 0.5mg/1mg
     Dates: start: 200906, end: 200906
  2. CHANTIX [Suspect]
     Dosage: 0.5mg/1mg
     Dates: start: 201012, end: 201012

REACTIONS (10)
  - Intentional overdose [Recovered/Resolved]
  - Suicide attempt [Recovered/Resolved]
  - Brain injury [Not Recovered/Not Resolved]
  - Deafness [Unknown]
  - Depression [Recovered/Resolved]
  - Anxiety [Recovered/Resolved]
  - Amnesia [Not Recovered/Not Resolved]
  - Abnormal behaviour [Unknown]
  - Executive dysfunction [Unknown]
  - Deep vein thrombosis [Unknown]
